FAERS Safety Report 25155896 (Version 1)
Quarter: 2025Q2

REPORT INFORMATION
  Report Type: Report from Study
  Country: ZA (occurrence: ZA)
  Receive Date: 20250403
  Receipt Date: 20250403
  Transmission Date: 20250717
  Serious: Yes (Hospitalization)
  Sender: ALEXION PHARMACEUTICALS
  Company Number: ZA-AstraZeneca-CH-00836723A

PATIENT
  Age: 79 Year

DRUGS (6)
  1. DAPAGLIFLOZIN [Suspect]
     Active Substance: DAPAGLIFLOZIN
     Indication: Diabetes mellitus
  2. Uromax [Concomitant]
     Indication: Prostatomegaly
  3. CLINDAMYCIN [Concomitant]
     Active Substance: CLINDAMYCIN
  4. FUROSEMIDE [Concomitant]
     Active Substance: FUROSEMIDE
     Indication: Hypertension
  5. LYRICA [Concomitant]
     Active Substance: PREGABALIN
     Indication: Epilepsy
  6. CARVEDILOL [Concomitant]
     Active Substance: CARVEDILOL
     Indication: Hypertension

REACTIONS (1)
  - Bladder disorder [Unknown]
